FAERS Safety Report 4771335-8 (Version None)
Quarter: 2005Q3

REPORT INFORMATION
  Report Type: 
  Country: None (occurrence: None)
  Receive Date: 20050915
  Receipt Date: 20050812
  Transmission Date: 20060218
  Serious: Yes (Hospitalization, Disabling)
  Sender: FDA-Public Use
  Company Number: US-MERCK-0508USA02378

PATIENT
  Age: 57 Year
  Sex: Male
  Weight: 111 kg

DRUGS (2)
  1. VIOXX [Suspect]
     Indication: ARTHRITIS
     Route: 048
     Dates: start: 20011116, end: 20030815
  2. ADVIL [Concomitant]
     Route: 065

REACTIONS (2)
  - ARTHROPATHY [None]
  - CEREBROVASCULAR ACCIDENT [None]
